FAERS Safety Report 5932149-6 (Version None)
Quarter: 2008Q4

REPORT INFORMATION
  Report Type: 
  Country: None (occurrence: None)
  Receive Date: 20081028
  Receipt Date: 20081020
  Transmission Date: 20090506
  Serious: Yes (Life-Threatening)
  Sender: FDA-Public Use
  Company Number: JP-BAYER-200812434BYL

PATIENT
  Age: 82 Year
  Sex: Female
  Weight: 40 kg

DRUGS (9)
  1. AVELOX [Suspect]
     Indication: PNEUMONIA
     Dosage: TOTAL DAILY DOSE: 400 MG  UNIT DOSE: 400 MG
     Route: 048
     Dates: start: 20080929, end: 20081003
  2. AVELOX [Suspect]
     Dosage: TOTAL DAILY DOSE: 400 MG  UNIT DOSE: 400 MG
     Route: 048
     Dates: start: 20081006, end: 20081009
  3. AMIKACIN SULFATE [Suspect]
     Indication: PNEUMONIA
     Dosage: TOTAL DAILY DOSE: 300 MG  UNIT DOSE: 300 MG
     Route: 041
     Dates: start: 20081006, end: 20081008
  4. ARICEPT [Concomitant]
     Indication: DEMENTIA
     Dosage: TOTAL DAILY DOSE: 3 MG  UNIT DOSE: 3 MG
     Route: 048
     Dates: start: 20080925, end: 20081008
  5. ENTERONON-R [Concomitant]
     Indication: BACTERIAL INFECTION
     Dosage: TOTAL DAILY DOSE: 3 G  UNIT DOSE: 1 G
     Route: 048
     Dates: start: 20081012
  6. ENTERONON-R [Concomitant]
     Dosage: TOTAL DAILY DOSE: 3 G  UNIT DOSE: 1 G
     Route: 048
     Dates: start: 20080925, end: 20081008
  7. MAXIPIME [Concomitant]
     Indication: PNEUMONIA
     Dosage: TOTAL DAILY DOSE: 2 G  UNIT DOSE: 1 G
     Route: 041
     Dates: start: 20081009
  8. SEFIROM [Concomitant]
     Indication: PNEUMONIA
     Dosage: TOTAL DAILY DOSE: 2 G  UNIT DOSE: 2 G
     Route: 041
     Dates: start: 20081003, end: 20081006
  9. CLINDAMYCIN HCL [Concomitant]
     Indication: PNEUMONIA
     Dosage: TOTAL DAILY DOSE: 1200 MG  UNIT DOSE: 600 MG
     Route: 041
     Dates: start: 20081003, end: 20081006

REACTIONS (1)
  - PLATELET COUNT DECREASED [None]
